FAERS Safety Report 6392000-X (Version None)
Quarter: 2009Q4

REPORT INFORMATION
  Report Type: 
  Country: None (occurrence: None)
  Receive Date: 20091007
  Receipt Date: 20090930
  Transmission Date: 20100525
  Serious: Yes (Hospitalization)
  Sender: FDA-Public Use
  Company Number: B0596780A

PATIENT
  Age: 64 Year
  Sex: Male

DRUGS (8)
  1. KREDEX [Suspect]
     Indication: CARDIAC FAILURE
     Dosage: 12.5MG PER DAY
     Route: 048
     Dates: start: 20090401
  2. APROVEL [Suspect]
     Indication: HYPERTENSION
     Dosage: 75MG PER DAY
     Route: 048
     Dates: start: 20090401
  3. VITAMIN B1 TAB [Concomitant]
  4. DOLIPRANE [Concomitant]
  5. CACIT [Concomitant]
  6. GUTRON [Concomitant]
  7. ACTONEL [Concomitant]
  8. ZOLPIDEM [Concomitant]

REACTIONS (3)
  - FALL [None]
  - MALAISE [None]
  - ORTHOSTATIC HYPOTENSION [None]
